FAERS Safety Report 6532658-5 (Version None)
Quarter: 2010Q1

REPORT INFORMATION
  Report Type: 
  Country: None (occurrence: None)
  Receive Date: 20100111
  Receipt Date: 20091002
  Transmission Date: 20100710
  Serious: Yes (Hospitalization)
  Sender: FDA-Public Use
  Company Number: IE-CELGENEUS-229-20484-09121834

PATIENT
  Sex: Female
  Weight: 3 kg

DRUGS (3)
  1. INNOHEP [Suspect]
     Route: 064
     Dates: start: 20051221, end: 20060813
  2. METFORMIN HCL [Concomitant]
     Route: 064
  3. AMOXICILLIN [Concomitant]
     Route: 064
     Dates: start: 20060624, end: 20060628

REACTIONS (5)
  - DRUG EXPOSURE DURING PREGNANCY [None]
  - HYPOGLYCAEMIA [None]
  - POLYCYTHAEMIA [None]
  - SEPSIS [None]
  - THROMBOCYTOPENIA [None]
